FAERS Safety Report 9494616 (Version 2)
Quarter: 2013Q3

REPORT INFORMATION
  Report Type: Spontaneous
  Country: US (occurrence: US)
  Receive Date: 20130903
  Receipt Date: 20130911
  Transmission Date: 20140515
  Serious: Yes (Other)
  Sender: FDA-Public Use
  Company Number: US-PFIZER INC-2013250964

PATIENT
  Age: 74 Year
  Sex: Female
  Weight: 68.03 kg

DRUGS (1)
  1. ADVIL PM [Suspect]
     Indication: SLEEP DISORDER
     Dosage: UNK
     Route: 048
     Dates: start: 20130828

REACTIONS (3)
  - Cerebrovascular accident [Unknown]
  - Muscular weakness [Recovering/Resolving]
  - Fall [Unknown]
